FAERS Safety Report 4733487-5 (Version None)
Quarter: 2005Q3

REPORT INFORMATION
  Report Type: 
  Country: None (occurrence: None)
  Receive Date: 20050801
  Receipt Date: 20050722
  Transmission Date: 20060218
  Serious: Yes (Life-Threatening, Hospitalization, Other)
  Sender: FDA-Public Use
  Company Number: FRWYE853622JUL05

PATIENT
  Age: 19 Year
  Sex: Male

DRUGS (1)
  1. MINOCIN [Suspect]
     Indication: ACNE
     Dosage: 100 MG 1X PER 1 DAY; ORAL
     Route: 048
     Dates: start: 20050528, end: 20050620

REACTIONS (5)
  - DRUG RASH WITH EOSINOPHILIA AND SYSTEMIC SYMPTOMS [None]
  - EOSINOPHILIC PNEUMONIA ACUTE [None]
  - HEPATITIS [None]
  - HEPATOSPLENOMEGALY [None]
  - PERICARDIAL EFFUSION [None]
